FAERS Safety Report 10205988 (Version 1)
Quarter: 2014Q2

REPORT INFORMATION
  Report Type: Spontaneous
  Country: US (occurrence: None)
  Receive Date: 20140527
  Receipt Date: 20140527
  Transmission Date: 20141212
  Serious: Yes (Hospitalization)
  Sender: FDA-Public Use
  Company Number: None

PATIENT
  Age: 57 Year
  Sex: Female

DRUGS (1)
  1. VANCOMYCIN [Suspect]
     Indication: INFECTION
     Route: 042
     Dates: start: 20120206, end: 20120226

REACTIONS (7)
  - Rash morbilliform [None]
  - Rash pruritic [None]
  - Swollen tongue [None]
  - Lip swelling [None]
  - Oropharyngeal pain [None]
  - Blister [None]
  - Infusion related reaction [None]
